FAERS Safety Report 23604328 (Version 1)
Quarter: 2024Q1

REPORT INFORMATION
  Report Type: Report from Study
  Country: CN (occurrence: CN)
  Receive Date: 20240307
  Receipt Date: 20240307
  Transmission Date: 20240410
  Serious: Yes (Other)
  Sender: FDA-Public Use
  Company Number: CN-Merck Healthcare KGaA-2024010945

PATIENT
  Age: 85 Year
  Sex: Female

DRUGS (1)
  1. METFORMIN [Suspect]
     Active Substance: METFORMIN HYDROCHLORIDE
     Indication: Type 2 diabetes mellitus
     Route: 048

REACTIONS (8)
  - Acute kidney injury [Recovering/Resolving]
  - Metabolic acidosis [Unknown]
  - Hyperkalaemia [Unknown]
  - Hyperglycaemia [Unknown]
  - Blood glucose increased [Unknown]
  - Intentional product use issue [Unknown]
  - Therapeutic response decreased [Unknown]
  - Overdose [Unknown]
